FAERS Safety Report 5288527-4 (Version None)
Quarter: 2007Q2

REPORT INFORMATION
  Report Type: 
  Country: None (occurrence: None)
  Receive Date: 20070405
  Receipt Date: 20070212
  Transmission Date: 20071010
  Serious: No
  Sender: FDA-Public Use
  Company Number: US-JNJFOC-20070203181

PATIENT
  Age: 36 Year
  Sex: Female
  Weight: 79.38 kg

DRUGS (4)
  1. INVEGA [Suspect]
     Indication: BIPOLAR DISORDER
     Route: 048
  2. WELLBUTRIN [Concomitant]
     Route: 048
  3. LUNESTA [Concomitant]
     Route: 048
  4. KLONOPIN [Concomitant]
     Route: 048

REACTIONS (1)
  - WEIGHT INCREASED [None]
